FAERS Safety Report 19458627 (Version 1)
Quarter: 2021Q2

REPORT INFORMATION
  Report Type: Spontaneous
  Country: FR (occurrence: FR)
  Receive Date: 20210624
  Receipt Date: 20210624
  Transmission Date: 20210717
  Serious: Yes (Life-Threatening)
  Sender: FDA-Public Use
  Company Number: FR-JNJFOC-20210640170

PATIENT
  Age: 66 Year
  Sex: Male
  Weight: 68 kg

DRUGS (7)
  1. METOJECT [Suspect]
     Active Substance: METHOTREXATE SODIUM
     Indication: PSORIASIS
     Dosage: 10 MG/0,2 ML
     Route: 058
     Dates: start: 20160401, end: 20170201
  2. OTEZLA [Suspect]
     Active Substance: APREMILAST
     Indication: PSORIASIS
     Route: 065
     Dates: start: 20170601, end: 20170601
  3. HUMIRA [Concomitant]
     Active Substance: ADALIMUMAB
     Indication: PSORIASIS
     Dates: end: 20150801
  4. METOJECT [Suspect]
     Active Substance: METHOTREXATE SODIUM
     Dosage: 10 MG/0,2 ML
     Route: 058
     Dates: start: 20170601, end: 20200101
  5. TREMFYA [Suspect]
     Active Substance: GUSELKUMAB
     Indication: PSORIASIS
     Route: 058
     Dates: start: 20200101, end: 20210401
  6. TREMFYA [Suspect]
     Active Substance: GUSELKUMAB
  7. TREMFYA [Suspect]
     Active Substance: GUSELKUMAB

REACTIONS (1)
  - Neoplasm of orbit [Not Recovered/Not Resolved]

NARRATIVE: CASE EVENT DATE: 202103
